FAERS Safety Report 4540413-0 (Version None)
Quarter: 2004Q4

REPORT INFORMATION
  Report Type: 
  Country: None (occurrence: None)
  Receive Date: 20041222
  Receipt Date: 20041202
  Transmission Date: 20050328
  Serious: Yes (Hospitalization, Other)
  Sender: FDA-Public Use
  Company Number: GBT040901665

PATIENT
  Age: 54 Year
  Sex: Female

DRUGS (6)
  1. GEMCITABINE HYDROCHLORIDE-IV (GEMCITABINE) [Suspect]
     Indication: OVARIAN CANCER
     Dosage: 1200 MG/2 OTHER
     Route: 050
     Dates: end: 20041022
  2. CARBOPLATIN [Suspect]
     Indication: OVARIAN CANCER
     Dosage: 500 MG/1 OTHER
     Route: 050
     Dates: end: 20041015
  3. PACLITAXEL [Suspect]
     Indication: OVARIAN CANCER
     Dosage: 260 MG/1 OTHER
     Route: 050
     Dates: end: 20041015
  4. MIRTAZAPINE [Concomitant]
  5. ESCITALOPRAM [Concomitant]
  6. ZOPICLONE (ZOPICLONE) [Concomitant]

REACTIONS (11)
  - AGGRESSION [None]
  - CONFUSIONAL STATE [None]
  - DYSARTHRIA [None]
  - MEMORY IMPAIRMENT [None]
  - MOOD SWINGS [None]
  - PANCYTOPENIA [None]
  - PARANOIA [None]
  - PERSONALITY CHANGE [None]
  - PYREXIA [None]
  - SPEECH DISORDER [None]
  - TEARFULNESS [None]
